FAERS Safety Report 8611581-6 (Version None)
Quarter: 2012Q3

REPORT INFORMATION
  Report Type: 
  Country: None (occurrence: None)
  Receive Date: 20120822
  Receipt Date: 20120816
  Transmission Date: 20120928
  Serious: Yes (Other)
  Sender: FDA-Public Use
  Company Number: PHEH2012US005594

PATIENT
  Sex: Female

DRUGS (1)
  1. GILENYA [Suspect]
     Indication: MULTIPLE SCLEROSIS
     Dosage: 0.5 MG, QD
     Route: 048
     Dates: start: 20110711, end: 20120201

REACTIONS (5)
  - CONSTIPATION [None]
  - CENTRAL NERVOUS SYSTEM LESION [None]
  - ATAXIA [None]
  - INCONTINENCE [None]
  - SYNCOPE [None]
